FAERS Safety Report 10216538 (Version 1)
Quarter: 2014Q2

REPORT INFORMATION
  Report Type: Report from Study
  Country: JP (occurrence: JP)
  Receive Date: 20140604
  Receipt Date: 20140604
  Transmission Date: 20141212
  Serious: Yes (Other)
  Sender: FDA-Public Use
  Company Number: JP-ROCHE-1410506

PATIENT
  Sex: 0

DRUGS (5)
  1. TRASTUZUMAB [Suspect]
     Indication: HER-2 POSITIVE BREAST CANCER
     Route: 042
  2. TRASTUZUMAB [Suspect]
     Route: 042
  3. TEGAFUR [Suspect]
     Indication: HER-2 POSITIVE BREAST CANCER
     Dosage: FOR 2 WEEKS, FOLLOWED BY A 1-WEEK REST.
     Route: 048
  4. GIMERACIL [Suspect]
     Indication: HER-2 POSITIVE BREAST CANCER
     Dosage: FOR 2 WEEKS, FOLLOWED BY A 1-WEEK REST.
     Route: 048
  5. POTASSIUM OXONATE [Suspect]
     Indication: HER-2 POSITIVE BREAST CANCER
     Dosage: FOR 2 WEEKS, FOLLOWED BY A 1-WEEK REST.
     Route: 048

REACTIONS (3)
  - Leukopenia [Unknown]
  - Alanine aminotransferase increased [Unknown]
  - Haematotoxicity [None]
